FAERS Safety Report 24327334 (Version 1)
Quarter: 2024Q3

REPORT INFORMATION
  Report Type: Report from Study
  Country: US (occurrence: US)
  Receive Date: 20240917
  Receipt Date: 20240917
  Transmission Date: 20241017
  Serious: No
  Sender: MIRUM PHARMACEUTICALS
  Company Number: US-MIRUM PHARMACEUTICALS, INC.-US-MIR-24-00834

PATIENT
  Age: 2 Year
  Sex: Male
  Weight: 8.8 kg

DRUGS (1)
  1. LIVMARLI [Suspect]
     Active Substance: MARALIXIBAT CHLORIDE
     Indication: Alagille syndrome
     Dosage: 0.35 MILLILITER, QD
     Route: 065

REACTIONS (4)
  - Blood bilirubin increased [Unknown]
  - Yellow skin [Unknown]
  - Ocular icterus [Unknown]
  - Prescribed overdose [Unknown]

NARRATIVE: CASE EVENT DATE: 20240806
